FAERS Safety Report 7451054-X (Version None)
Quarter: 2011Q2

REPORT INFORMATION
  Report Type: 
  Country: None (occurrence: None)
  Receive Date: 20110502
  Receipt Date: 20110427
  Transmission Date: 20111010
  Serious: Yes (Hospitalization)
  Sender: FDA-Public Use
  Company Number: FR-ROCHE-774025

PATIENT
  Sex: Male

DRUGS (2)
  1. ELOXATIN [Suspect]
     Route: 042
     Dates: start: 20110126, end: 20110126
  2. XELODA [Suspect]
     Route: 048
     Dates: start: 20110126

REACTIONS (1)
  - RENAL TUBULAR NECROSIS [None]
